FAERS Safety Report 17834848 (Version 1)
Quarter: 2020Q2

REPORT INFORMATION
  Report Type: Spontaneous
  Country: DE (occurrence: DE)
  Receive Date: 20200528
  Receipt Date: 20200528
  Transmission Date: 20200714
  Serious: Yes (Other)
  Sender: FDA-Public Use
  Company Number: NVSC2020DE146902

PATIENT
  Age: 76 Year
  Sex: Male
  Weight: 110 kg

DRUGS (1)
  1. METFORMIN [Suspect]
     Active Substance: METFORMIN HYDROCHLORIDE
     Indication: PRODUCT USED FOR UNKNOWN INDICATION
     Dosage: UNK(500 MG)
     Route: 065
     Dates: start: 2009, end: 2016

REACTIONS (6)
  - Fluid retention [Unknown]
  - Weight increased [Recovered/Resolved]
  - Cardiac failure [Unknown]
  - Drug interaction [Unknown]
  - Pulmonary oedema [Unknown]
  - Weight increased [Unknown]

NARRATIVE: CASE EVENT DATE: 2017
